FAERS Safety Report 22106080 (Version 3)
Quarter: 2023Q4

REPORT INFORMATION
  Report Type: Spontaneous
  Country: US (occurrence: US)
  Receive Date: 20230317
  Receipt Date: 20231211
  Transmission Date: 20240109
  Serious: No
  Sender: FDA-Public Use
  Company Number: US-SA-SAC20230310000419

PATIENT
  Age: 57 Year
  Sex: Female

DRUGS (3)
  1. DUPIXENT [Suspect]
     Active Substance: DUPILUMAB
     Indication: Psoriasis
     Dosage: 200 MG, QOW
     Route: 058
     Dates: start: 202201
  2. DUPIXENT [Suspect]
     Active Substance: DUPILUMAB
     Indication: Asthma
  3. OTEZLA [Suspect]
     Active Substance: APREMILAST

REACTIONS (7)
  - Pain [Unknown]
  - Psoriasis [Unknown]
  - Skin burning sensation [Unknown]
  - Pruritus [Unknown]
  - Injection site erythema [Unknown]
  - Injection site pruritus [Unknown]
  - Product use in unapproved indication [Unknown]
